FAERS Safety Report 17516613 (Version 1)
Quarter: 2020Q1

REPORT INFORMATION
  Report Type: Spontaneous
  Country: US (occurrence: US)
  Receive Date: 20200306
  Receipt Date: 20200306
  Transmission Date: 20200409
  Serious: Yes (Disabling)
  Sender: FDA-Public Use
  Company Number: None

PATIENT
  Age: 23 Year
  Sex: Female
  Weight: 63 kg

DRUGS (10)
  1. BUPROPION HYDROCHLORIDE XL [Suspect]
     Active Substance: BUPROPION HYDROCHLORIDE
     Indication: BIPOLAR I DISORDER
     Dosage: ?          QUANTITY:2 TABLET(S);?
     Route: 048
  2. VYVANSE [Concomitant]
     Active Substance: LISDEXAMFETAMINE DIMESYLATE
  3. BUPROPION XL [Concomitant]
     Active Substance: BUPROPION
  4. TYLENOL [Concomitant]
     Active Substance: ACETAMINOPHEN
  5. BUPROPION HYDROCHLORIDE XL [Suspect]
     Active Substance: BUPROPION HYDROCHLORIDE
     Indication: BIPOLAR II DISORDER
     Dosage: ?          QUANTITY:2 TABLET(S);?
     Route: 048
  6. BUPROPION HYDROCHLORIDE XL [Suspect]
     Active Substance: BUPROPION HYDROCHLORIDE
     Indication: MAJOR DEPRESSION
     Dosage: ?          QUANTITY:2 TABLET(S);?
     Route: 048
  7. 365 LIQUID SUPER B12 B COMPLEX [Concomitant]
  8. LITHIUM 300 MG [Concomitant]
  9. NUUN ELECTROLYTE [Concomitant]
  10. OMEGA 3 FISH OIL [Concomitant]
     Active Substance: FISH OIL\OMEGA-3 FATTY ACIDS

REACTIONS (15)
  - Frustration tolerance decreased [None]
  - Migraine [None]
  - Memory impairment [None]
  - Drug withdrawal syndrome [None]
  - Paraesthesia [None]
  - Irritability [None]
  - Product substitution issue [None]
  - Abdominal discomfort [None]
  - Asthenia [None]
  - Migraine with aura [None]
  - Fatigue [None]
  - Restlessness [None]
  - Psychotic disorder [None]
  - Disturbance in attention [None]
  - Depression [None]
